FAERS Safety Report 14025590 (Version 2)
Quarter: 2017Q4

REPORT INFORMATION
  Report Type: Spontaneous
  Country: US (occurrence: US)
  Receive Date: 20170929
  Receipt Date: 20171018
  Transmission Date: 20180321
  Serious: No
  Sender: FDA-Public Use
  Company Number: US-GLAXOSMITHKLINE-US2017GSK150755

PATIENT
  Age: 56 Year
  Sex: Female
  Weight: 94.79 kg

DRUGS (5)
  1. OMEPRAZOLE CAPSULE [Suspect]
     Active Substance: OMEPRAZOLE
     Indication: GASTROOESOPHAGEAL REFLUX DISEASE
     Dosage: 40 MG, BID
  2. ESTRACE [Concomitant]
     Active Substance: ESTRADIOL
  3. FAMOTIDINE. [Concomitant]
     Active Substance: FAMOTIDINE
  4. TYLENOL [Concomitant]
     Active Substance: ACETAMINOPHEN
  5. ADVAIR DISKUS [Suspect]
     Active Substance: FLUTICASONE PROPIONATE\SALMETEROL XINAFOATE
     Indication: ASTHMA
     Dosage: 1 PUFF(S), BID
     Route: 055
     Dates: start: 201605

REACTIONS (3)
  - Drug ineffective [Unknown]
  - Dyspnoea [Unknown]
  - Drug hypersensitivity [Unknown]

NARRATIVE: CASE EVENT DATE: 201703
